FAERS Safety Report 19086190 (Version 3)
Quarter: 2021Q3

REPORT INFORMATION
  Report Type: Spontaneous
  Country: DE (occurrence: DE)
  Receive Date: 20210402
  Receipt Date: 20210730
  Transmission Date: 20211014
  Serious: Yes (Hospitalization, Other)
  Sender: FDA-Public Use
  Company Number: DE-BAYER-2021-116156

PATIENT
  Age: 60 Year
  Sex: Female

DRUGS (4)
  1. GADOLINIUM IN UNSPECIFIED DRUG [Suspect]
     Active Substance: GADOLINIUM
  2. PROHANCE [Suspect]
     Active Substance: GADOTERIDOL
  3. GADOVIST [Suspect]
     Active Substance: GADOBUTROL
     Indication: HEPATIC PAIN
  4. GADOVIST [Suspect]
     Active Substance: GADOBUTROL
     Indication: MAGNETIC RESONANCE IMAGING
     Dosage: 7.5 ML, ONCE
     Dates: start: 20161221, end: 20161221

REACTIONS (10)
  - Pyrexia [None]
  - Muscle spasms [None]
  - Nontherapeutic agent urine positive [None]
  - Hypoaesthesia [None]
  - Nausea [None]
  - Headache [Not Recovered/Not Resolved]
  - Nontherapeutic agent blood positive [None]
  - Urticaria [None]
  - Fatigue [Not Recovered/Not Resolved]
  - Myalgia [Not Recovered/Not Resolved]

NARRATIVE: CASE EVENT DATE: 20161221
